FAERS Safety Report 9319563 (Version 1)
Quarter: 2013Q2

REPORT INFORMATION
  Report Type: Spontaneous
  Country: US (occurrence: US)
  Receive Date: 20130530
  Receipt Date: 20130530
  Transmission Date: 20140414
  Serious: No
  Sender: FDA-Public Use
  Company Number: US-GLAXOSMITHKLINE-A1007191A

PATIENT
  Age: 67 Year
  Sex: Female

DRUGS (4)
  1. FLOLAN [Suspect]
  2. LETAIRIS [Suspect]
     Indication: COR PULMONALE CHRONIC
     Dosage: 10MG PER DAY
     Route: 048
     Dates: start: 20090210
  3. TYVASO [Suspect]
  4. ADCIRCA [Suspect]

REACTIONS (4)
  - Bronchitis [Unknown]
  - Upper respiratory tract infection [Unknown]
  - Ear infection [Unknown]
  - Sinusitis [Unknown]
